FAERS Safety Report 12234412 (Version 3)
Quarter: 2016Q2

REPORT INFORMATION
  Report Type: Spontaneous
  Country: US (occurrence: US)
  Receive Date: 20160404
  Receipt Date: 20160404
  Transmission Date: 20160815
  Serious: Yes (Other)
  Sender: FDA-Public Use
  Company Number: US-AKORN PHARMACEUTICALS-2016AKN00182

PATIENT

DRUGS (2)
  1. ERYTHROMYCIN. [Suspect]
     Active Substance: ERYTHROMYCIN
     Route: 065
  2. ERGOTAMINE/CAFFEINE 1 MG/100 MG TABLETS [Suspect]
     Active Substance: CAFFEINE\ERGOTAMINE
     Route: 065

REACTIONS (2)
  - Ergot poisoning [Unknown]
  - Drug interaction [Unknown]
